FAERS Safety Report 5728532-4 (Version None)
Quarter: 2008Q2

REPORT INFORMATION
  Report Type: 
  Country: None (occurrence: None)
  Receive Date: 20080506
  Receipt Date: 20080425
  Transmission Date: 20081010
  Serious: Yes (Life-Threatening, Hospitalization)
  Sender: FDA-Public Use
  Company Number: CH-AMGEN-US276988

PATIENT
  Age: 56 Year
  Sex: Female
  Weight: 55 kg

DRUGS (3)
  1. ENBREL [Suspect]
     Indication: PSORIATIC ARTHROPATHY
     Route: 058
     Dates: end: 20071001
  2. ENBREL [Suspect]
     Indication: PSORIASIS
  3. SURMONTIL [Concomitant]
     Dosage: UNKNOWN
     Route: 048

REACTIONS (8)
  - DEMENTIA [None]
  - DEPRESSIVE SYMPTOM [None]
  - ENCEPHALOPATHY [None]
  - FALL [None]
  - INTERSTITIAL LUNG DISEASE [None]
  - TYPE 2 DIABETES MELLITUS [None]
  - URINARY TRACT INFECTION [None]
  - VITAMIN B12 DEFICIENCY [None]
